FAERS Safety Report 16189487 (Version 1)
Quarter: 2019Q2

REPORT INFORMATION
  Report Type: Other
  Country: US (occurrence: US)
  Receive Date: 20190412
  Receipt Date: 20190412
  Transmission Date: 20190711
  Serious: Yes (Hospitalization, Other)
  Sender: FDA-Public Use
  Company Number: US-LEADING PHARMA, LLC-2065729

PATIENT
  Age: 70 Year
  Sex: Female

DRUGS (1)
  1. FUROSEMIDE TABLETS , 20 MG, 40 MG AND 80 MG [Suspect]
     Active Substance: FUROSEMIDE
     Indication: GENERALISED OEDEMA
     Route: 048

REACTIONS (1)
  - Hypokalaemia [Recovered/Resolved]
